FAERS Safety Report 9535002 (Version 3)
Quarter: 2013Q4

REPORT INFORMATION
  Report Type: Spontaneous
  Country: US (occurrence: US)
  Receive Date: 20130918
  Receipt Date: 20131010
  Transmission Date: 20140711
  Serious: Yes (Hospitalization, Other)
  Sender: FDA-Public Use
  Company Number: US-ASTRAZENECA-2013SE68684

PATIENT
  Age: 50 Year
  Sex: Female
  Weight: 120.2 kg

DRUGS (21)
  1. SEROQUEL [Suspect]
     Indication: SLEEP DISORDER
     Route: 048
     Dates: start: 2011
  2. SEROQUEL [Suspect]
     Indication: BIPOLAR DISORDER
     Route: 048
     Dates: start: 2011
  3. SEROQUEL [Suspect]
     Indication: SLEEP DISORDER
     Dosage: GENERIC 50MG 2 PILLS AT NIGHT
     Route: 048
     Dates: start: 2012
  4. SEROQUEL [Suspect]
     Indication: BIPOLAR DISORDER
     Dosage: GENERIC 50MG 2 PILLS AT NIGHT
     Route: 048
     Dates: start: 2012
  5. SEROQUEL [Suspect]
     Indication: SLEEP DISORDER
     Dosage: AT 50MG, 100MG, AND 200MG AT NIGHT ON AND OFF
     Route: 048
     Dates: start: 2013
  6. SEROQUEL [Suspect]
     Indication: BIPOLAR DISORDER
     Dosage: AT 50MG, 100MG, AND 200MG AT NIGHT ON AND OFF
     Route: 048
     Dates: start: 2013
  7. SEROQUEL [Suspect]
     Indication: SLEEP DISORDER
     Route: 048
     Dates: start: 201309
  8. SEROQUEL [Suspect]
     Indication: BIPOLAR DISORDER
     Route: 048
     Dates: start: 201309
  9. CYMBALTA [Concomitant]
     Indication: DEPRESSION
  10. CYMBALTA [Concomitant]
     Indication: FIBROMYALGIA
  11. CYMBALTA [Concomitant]
     Indication: PAIN
  12. CYMBALTA [Concomitant]
     Indication: NIGHTMARE
  13. BLOOD PRESSURE MEDICATION [Concomitant]
     Indication: BLOOD PRESSURE ABNORMAL
  14. ATAVAN [Concomitant]
     Indication: ANXIETY
  15. OXYCODONE [Concomitant]
     Indication: PAIN
  16. OXYCODONE [Concomitant]
     Indication: PAIN
  17. OXYCODONE [Concomitant]
     Indication: PAIN
     Dosage: 1 TO 3 TIMES A DAY AS NEEDED
  18. OXYCODONE [Concomitant]
     Indication: PAIN
     Dosage: 1 TO 3 TIMES A DAY AS NEEDED
  19. CEBUTAL [Concomitant]
     Indication: MIGRAINE
     Dosage: UNK PRN
  20. REQUIP [Concomitant]
     Indication: RESTLESS LEGS SYNDROME
  21. VALIUM [Concomitant]

REACTIONS (19)
  - Crying [Unknown]
  - Insomnia [Unknown]
  - Mental disorder [Unknown]
  - Emotional distress [Unknown]
  - Ulcer [Unknown]
  - Nightmare [Unknown]
  - Abnormal dreams [Unknown]
  - Adverse drug reaction [Unknown]
  - Sedation [Unknown]
  - Feeling abnormal [Unknown]
  - Post procedural complication [Unknown]
  - Red blood cell sedimentation rate increased [Unknown]
  - Arthralgia [Unknown]
  - Drug ineffective [Unknown]
  - Drug effect incomplete [Unknown]
  - Off label use [Unknown]
  - Intentional drug misuse [Unknown]
  - Drug dose omission [Unknown]
  - Therapeutic response unexpected [Not Recovered/Not Resolved]
